FAERS Safety Report 13988943 (Version 2)
Quarter: 2017Q3

REPORT INFORMATION
  Report Type: Spontaneous
  Country: GB (occurrence: GB)
  Receive Date: 20170919
  Receipt Date: 20170925
  Transmission Date: 20171128
  Serious: Yes (Life-Threatening, Hospitalization, Other)
  Sender: FDA-Public Use
  Company Number: GB-MYLANLABS-2017M1059294

PATIENT
  Age: 31 Year
  Sex: Male

DRUGS (3)
  1. CLOZAPINE. [Suspect]
     Active Substance: CLOZAPINE
     Dosage: UNK
  2. CLOZAPINE. [Suspect]
     Active Substance: CLOZAPINE
     Indication: SCHIZOPHRENIA
     Dosage: UNK
  3. CLOZAPINE. [Suspect]
     Active Substance: CLOZAPINE
     Dosage: UNK

REACTIONS (12)
  - Nasal congestion [Unknown]
  - Headache [Unknown]
  - Night sweats [Unknown]
  - Full blood count abnormal [Unknown]
  - Myocarditis [Recovered/Resolved]
  - Anxiety [Unknown]
  - Panic attack [Unknown]
  - Blood pressure increased [Unknown]
  - Skin discolouration [Unknown]
  - Sedation [Unknown]
  - Oropharyngeal pain [Unknown]
  - Viral infection [Unknown]
